FAERS Safety Report 16100068 (Version 1)
Quarter: 2019Q1

REPORT INFORMATION
  Report Type: Spontaneous
  Country: CA (occurrence: CA)
  Receive Date: 20190321
  Receipt Date: 20190321
  Transmission Date: 20190418
  Serious: Yes (Life-Threatening)
  Sender: FDA-Public Use
  Company Number: CA-JNJFOC-20190327034

PATIENT
  Age: 24 Year
  Sex: Female
  Weight: 111 kg

DRUGS (1)
  1. TRI-CYCLEN [Suspect]
     Active Substance: ETHINYL ESTRADIOL\NORGESTIMATE
     Indication: CONTRACEPTION
     Route: 048

REACTIONS (6)
  - Hypersomnia [Recovering/Resolving]
  - Apathy [Recovering/Resolving]
  - Performance status decreased [Recovering/Resolving]
  - Depression [Recovering/Resolving]
  - Libido decreased [Recovering/Resolving]
  - Negative thoughts [Recovering/Resolving]
